FAERS Safety Report 8872486 (Version 1)
Quarter: 2012Q4

REPORT INFORMATION
  Report Type: 
  Country: FI (occurrence: FI)
  Receive Date: 20121029
  Receipt Date: 20121029
  Transmission Date: 20130627
  Serious: Yes (Other)
  Sender: FDA-Public Use
  Company Number: FR-OTSUKA-US-2012-11560

PATIENT
  Age: 12 Year
  Sex: Male

DRUGS (4)
  1. BUSULFEX [Suspect]
     Route: 042
  2. CYCLOPHOSPHAMIDE [Concomitant]
     Indication: BONE MARROW CONDITIONING REGIMEN
     Route: 042
  3. ANTITHYMOCYTE IMMUNOGLOBULIN [Concomitant]
     Route: 065
  4. CORTICOSTEROIDS [Concomitant]
     Route: 065

REACTIONS (2)
  - Toxic epidermal necrolysis [Unknown]
  - Viral haemorrhagic cystitis [Recovered/Resolved]
